FAERS Safety Report 4759245-3 (Version None)
Quarter: 2005Q3

REPORT INFORMATION
  Report Type: 
  Country: None (occurrence: None)
  Receive Date: 20050831
  Receipt Date: 20050812
  Transmission Date: 20060218
  Serious: Yes (Hospitalization, Other)
  Sender: FDA-Public Use
  Company Number: BRO-008864

PATIENT
  Age: 47 Year
  Sex: Female

DRUGS (2)
  1. PROHANCE [Suspect]
     Indication: ARTHROPATHY
     Dosage: 20 ML IV
     Route: 042
  2. PROHANCE [Suspect]
     Indication: NUCLEAR MAGNETIC RESONANCE IMAGING
     Dosage: 20 ML IV
     Route: 042

REACTIONS (2)
  - BLOOD PRESSURE DECREASED [None]
  - MYOCARDIAL INFARCTION [None]
